FAERS Safety Report 15018278 (Version 1)
Quarter: 2018Q2

REPORT INFORMATION
  Report Type: Spontaneous
  Country: SA (occurrence: SA)
  Receive Date: 20180615
  Receipt Date: 20180615
  Transmission Date: 20180711
  Serious: Yes (Other)
  Sender: FDA-Public Use
  Company Number: SA-MYLANLABS-2018M1041169

PATIENT
  Age: 65 Year
  Sex: Male

DRUGS (3)
  1. ALPHAGAN P [Concomitant]
     Active Substance: BRIMONIDINE TARTRATE
     Indication: GLAUCOMA
     Dosage: THREE PER DAY
     Route: 065
  2. FLUOROURACIL. [Suspect]
     Active Substance: FLUOROURACIL
     Indication: PRODUCT USED FOR UNKNOWN INDICATION
     Dosage: 2.5 MG
     Route: 065
  3. LUMIGAN [Concomitant]
     Active Substance: BIMATOPROST
     Indication: GLAUCOMA
     Dosage: FOUR PER DAY
     Route: 065

REACTIONS (2)
  - Hyperplasia [Recovered/Resolved]
  - Corneal disorder [Recovered/Resolved]
